FAERS Safety Report 18904774 (Version 1)
Quarter: 2021Q1

REPORT INFORMATION
  Report Type: Spontaneous
  Country: CA (occurrence: CA)
  Receive Date: 20210217
  Receipt Date: 20210217
  Transmission Date: 20210420
  Serious: Yes (Other)
  Sender: FDA-Public Use
  Company Number: CA-PFIZER INC-2018218766

PATIENT
  Age: 71 Year
  Sex: Female

DRUGS (6)
  1. XELJANZ [Suspect]
     Active Substance: TOFACITINIB CITRATE
     Indication: RHEUMATOID ARTHRITIS
     Dosage: 5 MG, 2X/DAY
     Route: 048
     Dates: start: 20180517, end: 202102
  2. METHOTREXATE SODIUM. [Suspect]
     Active Substance: METHOTREXATE SODIUM
     Indication: RHEUMATOID ARTHRITIS
     Dosage: 15 MG, WEEKLY
     Route: 048
  3. ALEVE [Concomitant]
     Active Substance: NAPROXEN SODIUM
     Dosage: UNK, AS NEEDED
  4. RAMIPRIL. [Concomitant]
     Active Substance: RAMIPRIL
     Indication: HYPERTENSION
     Dosage: 2.5 MG, 1X/DAY
     Route: 065
  5. TYLENOL [Concomitant]
     Active Substance: ACETAMINOPHEN
     Dosage: 650 MG, 2X/DAY
  6. FOLIC ACID. [Concomitant]
     Active Substance: FOLIC ACID
     Dosage: UNK

REACTIONS (5)
  - Drug ineffective [Unknown]
  - Weight increased [Unknown]
  - Arthralgia [Unknown]
  - Breast cancer [Not Recovered/Not Resolved]
  - C-reactive protein increased [Not Recovered/Not Resolved]
